FAERS Safety Report 5307003-3 (Version None)
Quarter: 2007Q2

REPORT INFORMATION
  Report Type: 
  Country: None (occurrence: None)
  Receive Date: 20070425
  Receipt Date: 20070411
  Transmission Date: 20071010
  Serious: Yes (Hospitalization, Other)
  Sender: FDA-Public Use
  Company Number: US-ELI_LILLY_AND_COMPANY-US200606002831

PATIENT
  Age: 43 Year
  Sex: Female
  Weight: 90.702 kg

DRUGS (22)
  1. ZYPREXA [Suspect]
     Dosage: 2.5 MG, UNK
  2. ZYPREXA [Suspect]
     Dosage: 5 MG, UNK
  3. ZYPREXA [Suspect]
     Dosage: 10 MG, UNK
     Dates: start: 19990101, end: 20050101
  4. RISPERDAL [Concomitant]
     Dates: start: 20001025
  5. PHENERGAN HCL [Concomitant]
     Dates: start: 20001228
  6. TEGRETOL [Concomitant]
     Dates: start: 20000101, end: 20020101
  7. KLONOPIN [Concomitant]
     Dates: start: 19990822
  8. VALIUM [Concomitant]
     Dates: start: 19980402
  9. ATIVAN [Concomitant]
     Dates: start: 19980402
  10. XANAX [Concomitant]
     Dates: start: 20030629
  11. HALCION [Concomitant]
     Dates: start: 19990527
  12. BUSPAR [Concomitant]
     Dates: start: 20020927, end: 20021010
  13. ATARAX [Concomitant]
     Dates: start: 19990405
  14. CELEXA [Concomitant]
     Dates: start: 20010720, end: 20010725
  15. PROZAC [Concomitant]
     Dates: start: 19980326
  16. PAXIL [Concomitant]
     Dates: start: 19990423
  17. EFFEXOR [Concomitant]
     Dates: start: 20020805
  18. ELAVIL [Concomitant]
     Dates: start: 20010519, end: 20010522
  19. LOPRESSOR [Concomitant]
     Dates: start: 19980531
  20. ARISTOCORT [Concomitant]
     Dates: start: 20010624
  21. HYDROCORT [Concomitant]
     Dates: start: 20010521, end: 20010526
  22. LASIX [Concomitant]
     Dates: start: 19991118

REACTIONS (7)
  - CARDIAC DISORDER [None]
  - CEREBROVASCULAR ACCIDENT [None]
  - DIABETES MELLITUS [None]
  - DIABETIC COMA [None]
  - HYPERGLYCAEMIA [None]
  - HYPERTENSION [None]
  - SYNCOPE [None]
